FAERS Safety Report 25916266 (Version 1)
Quarter: 2025Q4

REPORT INFORMATION
  Report Type: Spontaneous
  Country: CA (occurrence: CA)
  Receive Date: 20251014
  Receipt Date: 20251014
  Transmission Date: 20260118
  Serious: Yes (Death, Hospitalization, Other)
  Sender: AMGEN
  Company Number: CA-AMGEN-CANSP2025200750

PATIENT
  Age: 5 Year
  Sex: Female

DRUGS (6)
  1. RITUXIMAB [Suspect]
     Active Substance: RITUXIMAB
     Indication: Heart transplant rejection
     Dosage: UNK
     Route: 065
  2. Immunoglobulin [Concomitant]
     Route: 040
  3. THYMOGLOBULIN [Concomitant]
     Active Substance: LAPINE T-LYMPHOCYTE IMMUNE GLOBULIN
  4. TACROLIMUS [Concomitant]
     Active Substance: TACROLIMUS
     Indication: Immunosuppressant drug therapy
  5. MYCOPHENOLATE MOFETIL [Concomitant]
     Active Substance: MYCOPHENOLATE MOFETIL
     Indication: Immunosuppressant drug therapy
  6. PREDNISONE [Concomitant]
     Active Substance: PREDNISONE
     Indication: Immunosuppressant drug therapy

REACTIONS (13)
  - Myocardial ischaemia [Fatal]
  - Atrioventricular block complete [Fatal]
  - Heart transplant rejection [Unknown]
  - Cardiogenic shock [Unknown]
  - Left ventricular dysfunction [Unknown]
  - Cardiac arrest [Unknown]
  - Atrial flutter [Unknown]
  - Coronary artery stenosis [Unknown]
  - Coronary artery occlusion [Unknown]
  - Hypogammaglobulinaemia [Unknown]
  - Ventricular hypertrophy [Unknown]
  - Drug ineffective for unapproved indication [Unknown]
  - Off label use [Unknown]
